FAERS Safety Report 7256773-6 (Version None)
Quarter: 2011Q1

REPORT INFORMATION
  Report Type: 
  Country: None (occurrence: None)
  Receive Date: 20110129
  Receipt Date: 20100712
  Transmission Date: 20110831
  Serious: Yes (Other)
  Sender: FDA-Public Use
  Company Number: US-ABBOTT-10P-163-0656884-00

PATIENT
  Sex: Female
  Weight: 96.248 kg

DRUGS (4)
  1. HUMIRA [Suspect]
     Indication: RHEUMATOID ARTHRITIS
     Dates: start: 20090401
  2. OS CAL [Concomitant]
     Indication: SUPPLEMENTATION THERAPY
  3. METHOTREXATE [Concomitant]
     Indication: RHEUMATOID ARTHRITIS
  4. MOBIC [Concomitant]
     Indication: RHEUMATOID ARTHRITIS

REACTIONS (3)
  - OEDEMA PERIPHERAL [None]
  - HYPERTENSION [None]
  - MYOCARDIAL INFARCTION [None]
